FAERS Safety Report 9231045 (Version 3)
Quarter: 2013Q3

REPORT INFORMATION
  Report Type: Spontaneous
  Country: BR (occurrence: BR)
  Receive Date: 20130415
  Receipt Date: 20130801
  Transmission Date: 20140515
  Serious: Yes (Hospitalization, Other)
  Sender: FDA-Public Use
  Company Number: BR-ABBOTT-13P-020-1075022-00

PATIENT
  Age: 64 Year
  Sex: Female
  Weight: 60 kg

DRUGS (15)
  1. HUMIRA [Suspect]
     Indication: OSTEOARTHRITIS
     Route: 058
     Dates: start: 201212, end: 20130305
  2. VANCOMYCIN [Suspect]
     Indication: INFECTION
     Dates: start: 20130322
  3. ACYCLOVIR [Suspect]
     Indication: MOUTH ULCERATION
     Route: 042
     Dates: start: 20130325, end: 20130401
  4. ATENOLOL [Concomitant]
     Indication: PRODUCT USED FOR UNKNOWN INDICATION
     Route: 048
  5. HYDROCHLOROTHIAZIDE [Concomitant]
     Indication: PRODUCT USED FOR UNKNOWN INDICATION
  6. ENALAPRIL MALEATE [Concomitant]
     Indication: PRODUCT USED FOR UNKNOWN INDICATION
  7. PREDNISONE [Concomitant]
     Indication: PRODUCT USED FOR UNKNOWN INDICATION
  8. PREDNISONE [Concomitant]
  9. PREDNISONE [Concomitant]
  10. CALCIUM CARBONATE W/COLECALCIFEROL [Concomitant]
     Indication: MINERAL SUPPLEMENTATION
     Dosage: 600MG + 400MG
  11. ARAVA [Concomitant]
     Indication: OSTEOPOROSIS
     Dates: end: 201303
  12. ADEFORTE [Concomitant]
     Indication: PRODUCT USED FOR UNKNOWN INDICATION
     Route: 048
  13. THIAMINE HYDROCHLORIDE [Concomitant]
     Indication: PRODUCT USED FOR UNKNOWN INDICATION
  14. FOLIC ACID [Concomitant]
     Indication: PRODUCT USED FOR UNKNOWN INDICATION
  15. METHOTREXATE [Concomitant]
     Indication: OSTEOARTHRITIS
     Dates: end: 201303

REACTIONS (13)
  - Pancytopenia [Recovered/Resolved]
  - Septic shock [Recovered/Resolved]
  - Sinusitis [Recovered/Resolved]
  - Febrile neutropenia [Recovered/Resolved]
  - Hypertension [Unknown]
  - Renal failure acute [Recovering/Resolving]
  - Skin ulcer [Recovered/Resolved]
  - Lip oedema [Unknown]
  - Mouth ulceration [Recovered/Resolved]
  - Odynophagia [Unknown]
  - Pyrexia [Unknown]
  - Transfusion reaction [Unknown]
  - Generalised oedema [Unknown]
